FAERS Safety Report 15336656 (Version 1)
Quarter: 2018Q3

REPORT INFORMATION
  Report Type: Spontaneous
  Country: US (occurrence: US)
  Receive Date: 20180830
  Receipt Date: 20180830
  Transmission Date: 20181010
  Serious: Yes (Death, Other)
  Sender: FDA-Public Use
  Company Number: US-NOVOPROD-618325

PATIENT
  Age: 80 Year
  Sex: Male

DRUGS (1)
  1. NOVOLIN 70/30 [Suspect]
     Active Substance: INSULIN HUMAN
     Indication: TYPE 2 DIABETES MELLITUS
     Dosage: UNK
     Route: 058
     Dates: start: 1998

REACTIONS (3)
  - Hepatic cirrhosis [Fatal]
  - Respiratory failure [Fatal]
  - Renal failure [Fatal]

NARRATIVE: CASE EVENT DATE: 2013
